FAERS Safety Report 22278988 (Version 1)
Quarter: 2023Q2

REPORT INFORMATION
  Report Type: Spontaneous
  Country: US (occurrence: US)
  Receive Date: 20230503
  Receipt Date: 20230503
  Transmission Date: 20230722
  Serious: Yes (Other)
  Sender: FDA-Public Use
  Company Number: US-MYLANLABS-2023M1045753

PATIENT
  Age: 60 Year
  Sex: Female

DRUGS (7)
  1. TACROLIMUS [Suspect]
     Active Substance: TACROLIMUS
     Indication: Palmoplantar pustulosis
     Dosage: UNK
     Route: 061
  2. ACITRETIN [Suspect]
     Active Substance: ACITRETIN
     Indication: Palmoplantar pustulosis
     Dosage: 25 MILLIGRAM, QD
     Route: 065
  3. DAPSONE [Suspect]
     Active Substance: DAPSONE
     Indication: Palmoplantar pustulosis
     Dosage: 50 MILLIGRAM, BID
     Route: 065
  4. CRISABOROLE [Suspect]
     Active Substance: CRISABOROLE
     Indication: Palmoplantar pustulosis
     Dosage: UNK
     Route: 061
  5. CALCIPOTRIENE [Suspect]
     Active Substance: CALCIPOTRIENE
     Indication: Palmoplantar pustulosis
     Dosage: UNK
     Route: 061
  6. APREMILAST [Suspect]
     Active Substance: APREMILAST
     Indication: Palmoplantar pustulosis
     Dosage: 30 MILLIGRAM, BID
     Route: 065
  7. SECUKINUMAB [Suspect]
     Active Substance: SECUKINUMAB
     Indication: Palmoplantar pustulosis
     Dosage: 300 MILLIGRAM, MONTHLY
     Route: 065

REACTIONS (2)
  - Treatment failure [Unknown]
  - Off label use [Unknown]
